FAERS Safety Report 11628473 (Version 1)
Quarter: 2015Q4

REPORT INFORMATION
  Report Type: Report from Study
  Country: GB (occurrence: GB)
  Receive Date: 20151014
  Receipt Date: 20151014
  Transmission Date: 20160304
  Serious: Yes (Hospitalization)
  Sender: FDA-Public Use
  Company Number: GB-ROCHE-1643789

PATIENT
  Sex: Female

DRUGS (1)
  1. ROACTEMRA [Suspect]
     Active Substance: TOCILIZUMAB
     Indication: RHEUMATOID ARTHRITIS
     Route: 058

REACTIONS (6)
  - Heart rate increased [Unknown]
  - Swelling [Unknown]
  - Sialoadenitis [Unknown]
  - Hypertension [Unknown]
  - Drug dose omission [Unknown]
  - Salivary gland disorder [Unknown]
